FAERS Safety Report 7767398-8 (Version None)
Quarter: 2011Q3

REPORT INFORMATION
  Report Type: 
  Country: None (occurrence: None)
  Receive Date: 20110922
  Receipt Date: 20100803
  Transmission Date: 20111222
  Serious: No
  Sender: FDA-Public Use
  Company Number: US-ASTRAZENECA-2007UW21496

PATIENT
  Age: 524 Month
  Sex: Male
  Weight: 146.5 kg

DRUGS (13)
  1. ASPIRIN [Concomitant]
  2. GLUCOPHAGE [Concomitant]
  3. SEROQUEL [Suspect]
     Indication: ANXIETY
     Dosage: 100 MG- 300 MG
     Route: 048
     Dates: start: 20030201, end: 20040101
  4. SEROQUEL [Suspect]
     Indication: BIPOLAR DISORDER
     Dosage: 100 MG- 300 MG
     Route: 048
     Dates: start: 20030201, end: 20040101
  5. SEROQUEL [Suspect]
     Dosage: 50 MG-200 MG
     Route: 048
     Dates: start: 20030201
  6. SEROQUEL [Suspect]
     Dosage: 50 MG-200 MG
     Route: 048
     Dates: start: 20030201
  7. ZYPREXA [Concomitant]
  8. LUNESTA [Concomitant]
  9. TRILEPTAL [Concomitant]
  10. SEROQUEL [Suspect]
     Dosage: 50 MG-200 MG
     Route: 048
     Dates: start: 20030201
  11. SYNTHROID [Concomitant]
  12. WELLBUTRIN [Concomitant]
  13. SEROQUEL [Suspect]
     Indication: DEPRESSION
     Dosage: 100 MG- 300 MG
     Route: 048
     Dates: start: 20030201, end: 20040101

REACTIONS (10)
  - PULMONARY EMBOLISM [None]
  - BLOOD CHOLESTEROL INCREASED [None]
  - HYPERLIPIDAEMIA [None]
  - BLOOD TRIGLYCERIDES INCREASED [None]
  - TYPE 2 DIABETES MELLITUS [None]
  - ADVERSE DRUG REACTION [None]
  - DIABETIC COMPLICATION [None]
  - ROTATOR CUFF SYNDROME [None]
  - GALLBLADDER DISORDER [None]
  - OBESITY [None]
